FAERS Safety Report 7275038-X (Version None)
Quarter: 2011Q1

REPORT INFORMATION
  Report Type: 
  Country: None (occurrence: None)
  Receive Date: 20110131
  Receipt Date: 20110125
  Transmission Date: 20110831
  Serious: Yes (Other)
  Sender: FDA-Public Use
  Company Number: 2010SP064810

PATIENT
  Sex: Female

DRUGS (1)
  1. DIPROPHOS (BETAMETHASONE SODIUM PHOSPHATE/ DIPROPIONATE /00582101/) [Suspect]
     Indication: SPINAL DISORDER
     Dosage: 7 MG; ONCE
     Dates: start: 20090630, end: 20090630

REACTIONS (4)
  - GASTROINTESTINAL DISORDER [None]
  - IRON DEFICIENCY [None]
  - MENORRHAGIA [None]
  - ABDOMINAL PAIN UPPER [None]
